FAERS Safety Report 10384182 (Version 2)
Quarter: 2014Q3

REPORT INFORMATION
  Report Type: Not Available
  Country: US (occurrence: US)
  Receive Date: 20140814
  Receipt Date: 20140814
  Transmission Date: 20150326
  Serious: No
  Sender: FDA-Public Use
  Company Number: US-LUPIN PHARMACEUTICALS INC.-E2B_00002161

PATIENT
  Sex: Male
  Weight: 86.26 kg

DRUGS (3)
  1. COREG [Concomitant]
     Active Substance: CARVEDILOL
     Indication: PROPHYLAXIS
     Route: 065
  2. AMLODIPINE BESYLATE TABLETS 5 MG (AMLODIPINE BESILATE) ( 5 MILLIGRAM, TABLETS) [Suspect]
     Active Substance: AMLODIPINE BESYLATE
     Indication: HYPERTENSION
     Route: 048
  3. AMLODIPINE BESYLATE TABLETS 5 MG (AMLODIPINE BESILATE) ( 5 MILLIGRAM, TABLETS) [Suspect]
     Active Substance: AMLODIPINE BESYLATE
     Route: 048

REACTIONS (1)
  - Peripheral swelling [Recovered/Resolved]
